FAERS Safety Report 10082897 (Version 3)
Quarter: 2014Q2

REPORT INFORMATION
  Report Type: Spontaneous
  Country: DE (occurrence: DE)
  Receive Date: 20140417
  Receipt Date: 20140620
  Transmission Date: 20141212
  Serious: Yes (Life-Threatening, Hospitalization, Other)
  Sender: FDA-Public Use
  Company Number: DE-ROCHE-1384443

PATIENT
  Sex: Female
  Weight: 57.3 kg

DRUGS (7)
  1. ROACTEMRA [Suspect]
     Indication: JUVENILE IDIOPATHIC ARTHRITIS
     Route: 042
     Dates: start: 201312, end: 20140415
  2. PREDNISONE [Concomitant]
     Dosage: 7.5 MG IN THE MORNING, 2.5 MG IN THE EVENING
     Route: 065
  3. PANTOPRAZOL [Concomitant]
     Route: 065
  4. VITAMIN D3 [Concomitant]
     Route: 065
  5. CERTOPARIN [Concomitant]
     Route: 058
  6. DICLOFENAC [Concomitant]
     Route: 065
  7. CODEIN [Concomitant]
     Route: 065

REACTIONS (4)
  - Dyspnoea [Recovered/Resolved]
  - Loss of consciousness [Recovered/Resolved]
  - Brain stem syndrome [Recovered/Resolved]
  - Respiratory arrest [Recovered/Resolved]
